FAERS Safety Report 12340160 (Version 1)
Quarter: 2016Q2

REPORT INFORMATION
  Report Type: Spontaneous
  Country: US (occurrence: None)
  Receive Date: 20160505
  Receipt Date: 20160505
  Transmission Date: 20160815
  Serious: Yes (Death)
  Sender: FDA-Public Use
  Company Number: None

PATIENT
  Age: 67 Year
  Sex: Female
  Weight: 115 kg

DRUGS (4)
  1. BLINATUMOMAB AMGEN [Suspect]
     Active Substance: BLINATUMOMAB
     Indication: B-CELL TYPE ACUTE LEUKAEMIA
     Route: 041
     Dates: start: 20150819, end: 20151101
  2. BLINATUMOMAB AMGEN [Suspect]
     Active Substance: BLINATUMOMAB
     Indication: ACUTE LYMPHOCYTIC LEUKAEMIA
     Route: 041
     Dates: start: 20150819, end: 20151101
  3. POMP (VINCRISTINE, MERCAPTOPURINE, PREDNISONE, METHOTREXATE) [Concomitant]
  4. LARSON/CALGB 9111 [Concomitant]

REACTIONS (2)
  - Acute hepatic failure [None]
  - Hepatitis B [None]

NARRATIVE: CASE EVENT DATE: 20160501
